FAERS Safety Report 15605188 (Version 1)
Quarter: 2018Q4

REPORT INFORMATION
  Report Type: Report from Study
  Country: DE (occurrence: DE)
  Receive Date: 20181112
  Receipt Date: 20181112
  Transmission Date: 20190205
  Serious: Yes (Hospitalization)
  Sender: FDA-Public Use
  Company Number: DE-ACCORD-091241

PATIENT
  Age: 19 Year
  Sex: Female

DRUGS (3)
  1. INFLECTRA [Suspect]
     Active Substance: INFLIXIMAB-DYYB
     Indication: PRODUCT USED FOR UNKNOWN INDICATION
     Dosage: DAILY DOSE OF 300 MG EVERY 6 WEEKS
     Route: 065
     Dates: start: 20160722, end: 201701
  2. SIMPONI [Suspect]
     Active Substance: GOLIMUMAB
     Indication: RHEUMATOID ARTHRITIS
     Dosage: DAILY DOSE OF 50 MG EVERY 4 WEEK
     Route: 058
     Dates: start: 201604, end: 201607
  3. METHOTREXATE. [Suspect]
     Active Substance: METHOTREXATE
     Indication: PRODUCT USED FOR UNKNOWN INDICATION
     Dosage: DAILY?DOSE OF 25?MG EVERY WEEK
     Route: 065

REACTIONS (2)
  - Rheumatoid arthritis [Unknown]
  - Hypochromic anaemia [Unknown]

NARRATIVE: CASE EVENT DATE: 20160715
